FAERS Safety Report 15954769 (Version 1)
Quarter: 2019Q1

REPORT INFORMATION
  Report Type: Spontaneous
  Country: US (occurrence: US)
  Receive Date: 20190213
  Receipt Date: 20190213
  Transmission Date: 20190417
  Serious: No
  Sender: FDA-Public Use
  Company Number: US-IPSEN BIOPHARMACEUTICALS, INC.-2019-02035

PATIENT
  Age: 42 Year
  Sex: Female

DRUGS (2)
  1. DYSPORT [Suspect]
     Active Substance: ABOBOTULINUMTOXINA
     Indication: SKIN COSMETIC PROCEDURE
     Dosage: 80 UNITS
     Route: 065
     Dates: start: 20190128, end: 20190128
  2. BOTOX [Suspect]
     Active Substance: ONABOTULINUMTOXINA
     Indication: SKIN WRINKLING
     Dosage: 10 UNITS
     Dates: start: 20190128, end: 20190128

REACTIONS (3)
  - Peripheral swelling [Not Recovered/Not Resolved]
  - Rash [Unknown]
  - Incorrect product administration duration [Unknown]
